FAERS Safety Report 5716250-8 (Version None)
Quarter: 2008Q2

REPORT INFORMATION
  Report Type: 
  Country: None (occurrence: None)
  Receive Date: 20080424
  Receipt Date: 20080417
  Transmission Date: 20081010
  Serious: Yes (Other)
  Sender: FDA-Public Use
  Company Number: A0723431A

PATIENT
  Age: 56 Year
  Sex: Female

DRUGS (3)
  1. FLOVENT [Suspect]
     Indication: CHRONIC OBSTRUCTIVE PULMONARY DISEASE
     Route: 055
     Dates: start: 20030101
  2. ALBUTEROL [Concomitant]
  3. SPIRIVA [Concomitant]
     Dates: start: 20071001, end: 20080307

REACTIONS (1)
  - NEUROPATHY PERIPHERAL [None]
